FAERS Safety Report 5056096-X (Version None)
Quarter: 2006Q3

REPORT INFORMATION
  Report Type: 
  Country: None (occurrence: None)
  Receive Date: 20060717
  Receipt Date: 20060717
  Transmission Date: 20061208
  Serious: Yes (Other)
  Sender: FDA-Public Use
  Company Number: None

PATIENT
  Sex: Female
  Weight: 51.2565 kg

DRUGS (1)
  1. NEVANAC [Suspect]
     Indication: PROCEDURAL PAIN
     Dosage: ONE DROP  TID  LEFT EYE
     Dates: start: 20051123, end: 20051202

REACTIONS (3)
  - IMPAIRED HEALING [None]
  - VISION BLURRED [None]
  - VISUAL DISTURBANCE [None]
